FAERS Safety Report 8607561-7 (Version None)
Quarter: 2012Q3

REPORT INFORMATION
  Report Type: 
  Country: None (occurrence: None)
  Receive Date: 20120821
  Receipt Date: 20120811
  Transmission Date: 20120928
  Serious: Yes (Death)
  Sender: FDA-Public Use
  Company Number: US-CELGENEUS-163-21880-12070108

PATIENT
  Sex: Male

DRUGS (11)
  1. DAPSONE [Concomitant]
     Dosage: 100 MILLIGRAM
     Route: 065
  2. FINASTERIDE [Concomitant]
     Route: 065
  3. CEFPODOXIME PROXETIL [Concomitant]
     Indication: INFECTION
     Dosage: 400 MILLIGRAM
     Route: 065
     Dates: start: 20120530
  4. CEFPODOXIME PROXETIL [Concomitant]
     Indication: PNEUMONIA
  5. NYSTATIN [Concomitant]
     Route: 065
  6. REVLIMID [Suspect]
     Dosage: 5 MILLIGRAM
     Route: 048
     Dates: start: 20120301, end: 20120101
  7. PREDNISONE [Concomitant]
     Dosage: TAPER
     Route: 065
  8. ALLOPURINOL [Concomitant]
     Indication: GOUT
     Dosage: 100 MILLIGRAM
     Route: 065
  9. DIGOXIN [Concomitant]
     Route: 065
  10. VALTREX [Concomitant]
     Indication: ANTIVIRAL PROPHYLAXIS
     Dosage: 500 MILLIGRAM
     Route: 065
  11. METOPROLOL TARTRATE [Concomitant]
     Route: 065

REACTIONS (2)
  - CHRONIC LYMPHOCYTIC LEUKAEMIA [None]
  - THROMBOCYTOPENIA [None]
